FAERS Safety Report 22129956 (Version 1)
Quarter: 2023Q1

REPORT INFORMATION
  Report Type: Other
  Country: None (occurrence: US)
  Receive Date: 20230323
  Receipt Date: 20230323
  Transmission Date: 20230418
  Serious: Yes (Other)
  Sender: FDA-Public Use
  Company Number: US-ASPIRO PHARMA LTD-2139418

PATIENT
  Age: 63 Year
  Sex: Female

DRUGS (1)
  1. SUCCINYLCHOLINE CHLORIDE [Suspect]
     Active Substance: SUCCINYLCHOLINE CHLORIDE
     Indication: Electroconvulsive therapy
     Route: 065

REACTIONS (2)
  - Pain in jaw [Recovered/Resolved]
  - Myalgia [Recovered/Resolved]
